FAERS Safety Report 7583365-1 (Version None)
Quarter: 2011Q2

REPORT INFORMATION
  Report Type: 
  Country: None (occurrence: None)
  Receive Date: 20110623
  Receipt Date: 20110608
  Transmission Date: 20111010
  Serious: Yes (Other)
  Sender: FDA-Public Use
  Company Number: 2011-00633

PATIENT
  Age: 89 Year
  Sex: Female

DRUGS (11)
  1. AMITRIPTYLINE HCL [Concomitant]
  2. NEFOPAM [Concomitant]
  3. SIMVASTATIN [Concomitant]
  4. LACTULOSE [Concomitant]
  5. ACETAMINOPHEN [Concomitant]
  6. LISINOPRIL [Suspect]
     Indication: HYPERTENSION
     Dosage: 40 MG (40 MG,1 IN 1 D), ORAL
     Route: 048
  7. AMLODIPINE [Concomitant]
  8. POLYETHYLENE GLYCOL [Concomitant]
  9. ASPIRIN [Concomitant]
  10. OMEPRAZOLE [Concomitant]
  11. QUININE SULFATE [Concomitant]

REACTIONS (2)
  - SALIVARY GLAND ENLARGEMENT [None]
  - SWOLLEN TONGUE [None]
